FAERS Safety Report 5635746-0 (Version None)
Quarter: 2008Q1

REPORT INFORMATION
  Report Type: 
  Country: None (occurrence: None)
  Receive Date: 20080223
  Receipt Date: 20080213
  Transmission Date: 20080703
  Serious: Yes (Other)
  Sender: FDA-Public Use
  Company Number: US-ELI_LILLY_AND_COMPANY-US200802002879

PATIENT
  Sex: Male

DRUGS (6)
  1. HUMALOG [Suspect]
     Indication: DIABETES MELLITUS
     Dosage: UNK, AS NEEDED
  2. HUMALOG [Suspect]
     Dosage: UNK, AS NEEDED
     Dates: start: 20050101
  3. HUMALOG [Suspect]
     Dosage: UNK, AS NEEDED
     Dates: start: 20070101
  4. HUMULIN N [Suspect]
     Dosage: UNK, UNK
     Dates: end: 20070101
  5. HUMALOG MIX 75/25 [Suspect]
     Dosage: UNK, UNK
     Dates: start: 20070101, end: 20070101
  6. LANTUS [Concomitant]
     Indication: DIABETES MELLITUS
     Dosage: 67 U, DAILY (1/D) AT BEDTIME

REACTIONS (4)
  - BLOOD GLUCOSE DECREASED [None]
  - HYPOGLYCAEMIA [None]
  - HYPOGLYCAEMIC UNCONSCIOUSNESS [None]
  - MEMORY IMPAIRMENT [None]
